FAERS Safety Report 25136525 (Version 1)
Quarter: 2025Q1

REPORT INFORMATION
  Report Type: Spontaneous
  Country: ES (occurrence: ES)
  Receive Date: 20250328
  Receipt Date: 20250328
  Transmission Date: 20250409
  Serious: Yes (Death, Hospitalization, Other)
  Sender: PFIZER
  Company Number: None

PATIENT
  Age: 75 Year
  Sex: Male
  Weight: 73.4 kg

DRUGS (1)
  1. PACLITAXEL [Suspect]
     Active Substance: PACLITAXEL
     Dosage: 115 MG, WEEKLY
     Route: 042
     Dates: start: 20250108, end: 20250205

REACTIONS (6)
  - Interstitial lung disease [Fatal]
  - Interstitial lung disease [Fatal]
  - Condition aggravated [Fatal]
  - Transitional cell carcinoma metastatic [Unknown]
  - Malignant neoplasm progression [Unknown]
  - Metastases to lung [Unknown]

NARRATIVE: CASE EVENT DATE: 20250212
